FAERS Safety Report 6724887-2 (Version None)
Quarter: 2010Q2

REPORT INFORMATION
  Report Type: 
  Country: None (occurrence: None)
  Receive Date: 20100514
  Receipt Date: 20100412
  Transmission Date: 20101027
  Serious: Yes (Death)
  Sender: FDA-Public Use
  Company Number: US-ASTRAZENECA-2007UW16605

PATIENT
  Age: 21787 Day
  Sex: Female
  Weight: 144.7 kg

DRUGS (4)
  1. SEROQUEL [Suspect]
     Route: 048
     Dates: start: 20081115
  2. TRAZODONE [Concomitant]
     Dates: start: 20081102
  3. SIMVASTATIN [Concomitant]
     Dates: start: 20081113
  4. CITALOPRAM [Concomitant]
     Dates: start: 20081116

REACTIONS (2)
  - ENDOCARDITIS [None]
  - TYPE 2 DIABETES MELLITUS [None]
